FAERS Safety Report 5085986-7 (Version None)
Quarter: 2006Q3

REPORT INFORMATION
  Report Type: 
  Country: None (occurrence: None)
  Receive Date: 20060817
  Receipt Date: 20060803
  Transmission Date: 20061208
  Serious: Yes (Other)
  Sender: FDA-Public Use
  Company Number: 2006097611

PATIENT
  Age: 34 Year
  Sex: Female

DRUGS (1)
  1. NEURONTIN [Suspect]
     Indication: EPILEPSY
     Dosage: 2400 MG (800 MG, 3 IN 1 D),
     Dates: start: 20050101

REACTIONS (3)
  - ARTHROPATHY [None]
  - BLOOD PROLACTIN INCREASED [None]
  - HEADACHE [None]
